FAERS Safety Report 17015690 (Version 1)
Quarter: 2019Q4

REPORT INFORMATION
  Report Type: Spontaneous
  Country: CN (occurrence: CN)
  Receive Date: 20191111
  Receipt Date: 20191111
  Transmission Date: 20200122
  Serious: Yes (Other)
  Sender: FDA-Public Use
  Company Number: CN-PFIZER INC-2019480861

PATIENT
  Age: 2 Year
  Sex: Female
  Weight: 12 kg

DRUGS (5)
  1. ZITHROMAX [Suspect]
     Active Substance: AZITHROMYCIN DIHYDRATE
     Indication: ANTI-INFECTIVE THERAPY
  2. SOLU-MEDROL [Suspect]
     Active Substance: METHYLPREDNISOLONE SODIUM SUCCINATE
     Indication: ANTIINFLAMMATORY THERAPY
     Dosage: 20 MG, 1X/DAY
     Route: 041
     Dates: start: 20191026, end: 20191027
  3. ZITHROMAX [Suspect]
     Active Substance: AZITHROMYCIN DIHYDRATE
     Indication: PNEUMONIA MYCOPLASMAL
     Dosage: 0.12 G, 1X/DAY
     Route: 041
     Dates: start: 20191023, end: 20191027
  4. SINGULAIR [Suspect]
     Active Substance: MONTELUKAST SODIUM
     Indication: COUGH
     Dosage: 4 MG, 1X/DAY
     Route: 048
     Dates: start: 20191023, end: 20191028
  5. BRICANYL [Concomitant]
     Active Substance: TERBUTALINE SULFATE
     Indication: COUGH
     Dosage: 2.5 MG, 1X/DAY
     Route: 055
     Dates: start: 20191024, end: 20191028

REACTIONS (3)
  - Irritability [Recovering/Resolving]
  - Dysphoria [Recovering/Resolving]
  - Aggression [Recovering/Resolving]

NARRATIVE: CASE EVENT DATE: 20191027
